FAERS Safety Report 5638952-4 (Version None)
Quarter: 2008Q1

REPORT INFORMATION
  Report Type: 
  Country: None (occurrence: None)
  Receive Date: 20080226
  Receipt Date: 20080225
  Transmission Date: 20080703
  Serious: Yes (Death)
  Sender: FDA-Public Use
  Company Number: JP-BRISTOL-MYERS SQUIBB COMPANY-14017347

PATIENT
  Age: 60 Year
  Sex: Female

DRUGS (1)
  1. TAXOL [Suspect]
     Indication: BREAST CANCER
     Route: 041
     Dates: start: 20070626, end: 20070629

REACTIONS (3)
  - DISSEMINATED INTRAVASCULAR COAGULATION [None]
  - RESPIRATORY ARREST [None]
  - TUMOUR LYSIS SYNDROME [None]
